FAERS Safety Report 18623385 (Version 1)
Quarter: 2020Q4

REPORT INFORMATION
  Report Type: Spontaneous
  Country: US (occurrence: US)
  Receive Date: 20201216
  Receipt Date: 20201216
  Transmission Date: 20210114
  Serious: No
  Sender: FDA-Public Use
  Company Number: US-009507513-2012USA006013

PATIENT
  Sex: Female
  Weight: 67.1 kg

DRUGS (10)
  1. DIAZEPAM. [Concomitant]
     Active Substance: DIAZEPAM
     Indication: MOTION SICKNESS
     Dosage: 5 MG, UNK
     Dates: start: 2016
  2. COZAAR [Suspect]
     Active Substance: LOSARTAN POTASSIUM
     Indication: IRRITABLE BOWEL SYNDROME
     Dosage: 1 (100 MG) TABLET, EVERY MORNING
     Route: 048
     Dates: start: 2018
  3. ZOFRAN [Concomitant]
     Active Substance: ONDANSETRON HYDROCHLORIDE
     Indication: NAUSEA
     Dosage: 4 MG, EVERY 6 HOURS AS NEEDED
     Route: 048
     Dates: start: 2017
  4. XYLOCAINE [Concomitant]
     Active Substance: LIDOCAINE HYDROCHLORIDE
     Indication: PAIN
     Dosage: 5 % PATCH AND OINTMENT, UNK
     Dates: start: 2018
  5. MAGNESIUM OXIDE. [Concomitant]
     Active Substance: MAGNESIUM OXIDE
     Indication: IRRITABLE BOWEL SYNDROME
     Dosage: 1 (241.3 MG) TABLET, 2 TIMES DAILY
     Route: 048
     Dates: start: 2018
  6. GLUCOPHAGE [Concomitant]
     Active Substance: METFORMIN HYDROCHLORIDE
     Indication: NEPHROPATHY
     Dosage: 1 (1000 MG) TABLET, TWICE A DAY WITH MEALS
     Route: 048
     Dates: start: 2010
  7. PRILOSEC [Concomitant]
     Active Substance: OMEPRAZOLE MAGNESIUM
     Indication: GASTROOESOPHAGEAL REFLUX DISEASE
     Dosage: 1 (20 MG) CAPSULE EVERY MORNING, 30 MINUTES BEFORE EATING, WITH WATER ONLY
     Route: 048
     Dates: start: 2015
  8. IMODIUM [Concomitant]
     Active Substance: LOPERAMIDE HYDROCHLORIDE
     Indication: IRRITABLE BOWEL SYNDROME
     Dosage: 2 MG, UNK
     Route: 048
     Dates: start: 2018
  9. LOVENOX [Concomitant]
     Active Substance: ENOXAPARIN SODIUM
     Indication: DEEP VEIN THROMBOSIS
     Dosage: UNK
     Dates: start: 2017
  10. LIDODERM [Concomitant]
     Active Substance: LIDOCAINE
     Indication: PAIN
     Dosage: 5 % PATCH AND OINTMENT, UNK
     Dates: start: 2018

REACTIONS (1)
  - Product use in unapproved indication [Unknown]

NARRATIVE: CASE EVENT DATE: 2018
